FAERS Safety Report 15203643 (Version 1)
Quarter: 2018Q3

REPORT INFORMATION
  Report Type: Spontaneous
  Country: US (occurrence: US)
  Receive Date: 20180726
  Receipt Date: 20180726
  Transmission Date: 20181010
  Serious: No
  Sender: FDA-Public Use
  Company Number: US-CELGENEUS-USA-20180705966

PATIENT
  Sex: Female

DRUGS (1)
  1. OTEZLA [Suspect]
     Active Substance: APREMILAST
     Indication: PRODUCT USED FOR UNKNOWN INDICATION
     Dosage: TRIAL PACK
     Route: 048
     Dates: start: 2018

REACTIONS (3)
  - Spinal pain [Not Recovered/Not Resolved]
  - Hypoaesthesia [Unknown]
  - Myalgia [Unknown]

NARRATIVE: CASE EVENT DATE: 2018
